FAERS Safety Report 14155426 (Version 1)
Quarter: 2017Q4

REPORT INFORMATION
  Report Type: Spontaneous
  Country: FR (occurrence: FR)
  Receive Date: 20171103
  Receipt Date: 20171103
  Transmission Date: 20180321
  Serious: Yes (Other)
  Sender: FDA-Public Use
  Company Number: FR-MERCK KGAA-2033113

PATIENT
  Age: 38 Year
  Sex: Female

DRUGS (7)
  1. FLUOROURACIL. [Suspect]
     Active Substance: FLUOROURACIL
     Dates: start: 201701, end: 201703
  2. EPIRUBICIN [Suspect]
     Active Substance: EPIRUBICIN
     Dates: start: 201701, end: 201703
  3. EMEND [Suspect]
     Active Substance: APREPITANT
  4. NOVOTHYROX [Suspect]
     Active Substance: LEVOTHYROXINE SODIUM
     Indication: HYPOTHYROIDISM
  5. ENDOXAN [Suspect]
     Active Substance: CYCLOPHOSPHAMIDE
  6. TAXOTERE [Suspect]
     Active Substance: DOCETAXEL
     Dates: start: 201704
  7. KYTRIL [Suspect]
     Active Substance: GRANISETRON HYDROCHLORIDE

REACTIONS (2)
  - Complication of pregnancy [Recovered/Resolved]
  - Maternal exposure timing unspecified [Recovered/Resolved]
